FAERS Safety Report 5647423-0 (Version None)
Quarter: 2008Q1

REPORT INFORMATION
  Report Type: 
  Country: None (occurrence: None)
  Receive Date: 20080303
  Receipt Date: 20080222
  Transmission Date: 20080703
  Serious: Yes (Hospitalization, Disabling, Other)
  Sender: FDA-Public Use
  Company Number: GB-ASTRAZENECA-2008GB00344

PATIENT
  Age: 43 Year
  Sex: Female
  Weight: 87 kg

DRUGS (4)
  1. QUETIAPINE FUMARATE [Suspect]
     Indication: PSYCHOTIC DISORDER
     Route: 048
     Dates: start: 20071218, end: 20080130
  2. DULOXETINE [Concomitant]
     Indication: DEPRESSION
     Route: 048
     Dates: start: 20071213, end: 20080130
  3. RISPERDAL [Concomitant]
     Indication: PSYCHOTIC DISORDER
     Route: 030
     Dates: start: 20060101
  4. RISPERIDONE [Concomitant]
     Indication: PSYCHOTIC DISORDER
     Route: 048
     Dates: start: 20060101, end: 20080109

REACTIONS (2)
  - HEPATITIS [None]
  - LIVER FUNCTION TEST ABNORMAL [None]
